FAERS Safety Report 15387282 (Version 8)
Quarter: 2019Q1

REPORT INFORMATION
  Report Type: Report from Study
  Country: US (occurrence: US)
  Receive Date: 20180914
  Receipt Date: 20190314
  Transmission Date: 20190417
  Serious: Yes (Hospitalization, Other)
  Sender: FDA-Public Use
  Company Number: US-ASTRAZENECA-2018SE21703

PATIENT
  Age: 18684 Day
  Sex: Female

DRUGS (3)
  1. IMFINZI [Suspect]
     Active Substance: DURVALUMAB
     Route: 042
     Dates: start: 20171218
  2. PREDNISONE. [Concomitant]
     Active Substance: PREDNISONE
  3. PREDNISONE. [Concomitant]
     Active Substance: PREDNISONE

REACTIONS (36)
  - Wheezing [Unknown]
  - Fall [Unknown]
  - Rash erythematous [Unknown]
  - Dyspnoea exertional [Recovering/Resolving]
  - Chills [Unknown]
  - Constipation [Unknown]
  - Upper limb fracture [Unknown]
  - Heart rate increased [Unknown]
  - Fatigue [Not Recovered/Not Resolved]
  - Nausea [Unknown]
  - Fluid retention [Recovered/Resolved]
  - Rib fracture [Unknown]
  - Dark circles under eyes [Not Recovered/Not Resolved]
  - Feeling abnormal [Unknown]
  - Pneumonia [Unknown]
  - Venous stenosis [Unknown]
  - Product dose omission [Unknown]
  - Peripheral swelling [Unknown]
  - Hypotension [Unknown]
  - Feeling cold [Unknown]
  - Headache [Recovered/Resolved]
  - Dyspnoea [Not Recovered/Not Resolved]
  - Thrombosis [Unknown]
  - Contusion [Recovered/Resolved]
  - Lung neoplasm malignant [Unknown]
  - Neuropathy peripheral [Recovering/Resolving]
  - Oedema peripheral [Unknown]
  - Tracheal radiation injury [Unknown]
  - Joint swelling [Unknown]
  - Cortisol decreased [Recovered/Resolved]
  - Hypersensitivity [Recovered/Resolved]
  - Pain in extremity [Unknown]
  - Chronic obstructive pulmonary disease [Unknown]
  - Bronchitis [Unknown]
  - Lung infection [Unknown]
  - Paraesthesia [Unknown]

NARRATIVE: CASE EVENT DATE: 20171218
